FAERS Safety Report 5079154-2 (Version None)
Quarter: 2006Q3

REPORT INFORMATION
  Report Type: 
  Country: None (occurrence: None)
  Receive Date: 20060814
  Receipt Date: 20060810
  Transmission Date: 20061208
  Serious: Yes (Hospitalization)
  Sender: FDA-Public Use
  Company Number: US-GLAXOSMITHKLINE-A0616113A

PATIENT
  Age: 51 Year
  Sex: Male

DRUGS (10)
  1. PAXIL [Suspect]
     Indication: IRRITABILITY
     Route: 065
     Dates: start: 20060803
  2. FLONASE [Suspect]
     Indication: ASTHMA
     Route: 045
     Dates: start: 20060805
  3. AMARYL [Concomitant]
  4. ZETIA [Concomitant]
  5. LISINOPRIL [Concomitant]
  6. LEVOXYL [Concomitant]
  7. OMACOR [Concomitant]
  8. GLUCOPHAGE [Concomitant]
  9. ADVAIR DISKUS 100/50 [Concomitant]
  10. ASTHMA MEDICATION [Concomitant]
     Indication: ASTHMA

REACTIONS (5)
  - AGITATION [None]
  - BLOOD GLUCOSE INCREASED [None]
  - BLOOD PRESSURE INCREASED [None]
  - DYSPNOEA [None]
  - TACHYCARDIA [None]
